FAERS Safety Report 5649657-8 (Version None)
Quarter: 2008Q1

REPORT INFORMATION
  Report Type: 
  Country: None (occurrence: None)
  Receive Date: 20080304
  Receipt Date: 20080221
  Transmission Date: 20080703
  Serious: Yes (Other)
  Sender: FDA-Public Use
  Company Number: AU-PFIZER INC-2008016587

PATIENT
  Sex: Male

DRUGS (2)
  1. CAVERJECT [Suspect]
     Dosage: DAILY DOSE:20MCG
  2. MOBIC [Concomitant]

REACTIONS (1)
  - HAEMATURIA [None]
